FAERS Safety Report 9219968 (Version 2)
Quarter: 2013Q2

REPORT INFORMATION
  Report Type: Spontaneous
  Country: CA (occurrence: CA)
  Receive Date: 20130409
  Receipt Date: 20130508
  Transmission Date: 20140414
  Serious: Yes (Other)
  Sender: FDA-Public Use
  Company Number: CA-ROCHE-1209866

PATIENT
  Age: 18 Month
  Sex: Male

DRUGS (2)
  1. ACTILYSE [Suspect]
     Indication: ILIAC ARTERY OCCLUSION
     Dosage: MAXIMUM INFUSION DOSE OF 0.5 MG/KG/H FOR APPROX 76 HOURS
     Route: 013
  2. ACTILYSE [Suspect]
     Indication: OFF LABEL USE

REACTIONS (3)
  - Arterial spasm [Unknown]
  - Reperfusion injury [Recovered/Resolved with Sequelae]
  - Compartment syndrome [Recovered/Resolved with Sequelae]
